FAERS Safety Report 20189855 (Version 2)
Quarter: 2022Q1

REPORT INFORMATION
  Report Type: Report from Study
  Country: AT (occurrence: AT)
  Receive Date: 20211215
  Receipt Date: 20220105
  Transmission Date: 20220423
  Serious: Yes (Death)
  Sender: FDA-Public Use
  Company Number: AT-ROCHE-2849249

PATIENT
  Age: 66 Year
  Sex: Female
  Weight: 80.4 kg

DRUGS (20)
  1. TRASTUZUMAB [Suspect]
     Active Substance: TRASTUZUMAB
     Indication: HER2 positive breast cancer
     Dosage: MOST RECENT DOSE ON: 09/SEP/2019
     Route: 042
     Dates: start: 20190306
  2. TRASTUZUMAB [Suspect]
     Active Substance: TRASTUZUMAB
     Indication: HER2 positive breast cancer
     Dosage: MOST RECENT DOSE PRIOR TO THE EVENT: 30/DEC/2020
     Route: 042
     Dates: start: 20170224
  3. VINORELBINE [Suspect]
     Active Substance: VINORELBINE TARTRATE
     Indication: HER2 positive breast cancer
     Dosage: 45 MILLIGRAM, Q3W, MOST RECENT DOSE ON: 22/JUL/2020
     Route: 042
     Dates: start: 20200422
  4. DOXORUBICIN [Suspect]
     Active Substance: DOXORUBICIN
     Indication: HER2 positive breast cancer
     Dosage: 104.4 MILLIGRAM
     Route: 042
     Dates: start: 20210608, end: 20210608
  5. FULVESTRANT [Suspect]
     Active Substance: FULVESTRANT
     Indication: HER2 positive breast cancer
     Dosage: 500 MILLIGRAM, 05 WEEKS, MOST RECENT DOSE PRIOR TO THE EVENT: 16/NOV/2017
     Route: 058
     Dates: start: 20171002
  6. LAPATINIB [Suspect]
     Active Substance: LAPATINIB
     Indication: HER2 positive breast cancer
     Dosage: MOST RECENT DOSE: 07/JAN/2020
     Route: 048
     Dates: start: 20191002
  7. DOCETAXEL [Suspect]
     Active Substance: DOCETAXEL
     Indication: HER2 positive breast cancer
     Dosage: MOST RECENT DOSE PRIOR TO THE EVENT: 09/JUN/2017
     Route: 042
     Dates: start: 20170224
  8. CAPECITABINE [Suspect]
     Active Substance: CAPECITABINE
     Indication: HER2 positive breast cancer
     Dosage: MOST RECENT DOSE PRIOR TO THE EVENT: 30/DEC/2020
     Route: 048
     Dates: start: 20191002
  9. PERTUZUMAB [Suspect]
     Active Substance: PERTUZUMAB
     Indication: HER2 positive breast cancer
     Dosage: MOST RECENT DOSE PRIOR TO THE EVENT: 22/APR/2020
     Route: 042
     Dates: start: 20170224
  10. EUTHYROX [Concomitant]
     Active Substance: LEVOTHYROXINE SODIUM
     Dosage: ONGOING = CHECKED
     Dates: start: 20170303
  11. XGEVA [Concomitant]
     Active Substance: DENOSUMAB
     Dosage: ONGOING = CHECKED
     Dates: start: 20170202
  12. EDOXABAN TOSYLATE [Concomitant]
     Active Substance: EDOXABAN TOSYLATE
     Dosage: ONGOING = CHECKED
     Dates: start: 20200613
  13. CARBOXYMETHYLCELLULOSE SODIUM [Concomitant]
     Active Substance: CARBOXYMETHYLCELLULOSE SODIUM
     Dosage: ONGOING = CHECKED
     Dates: start: 20210105
  14. NOVALGIN (METAMIZOLE SODIUM) [Concomitant]
     Active Substance: METAMIZOLE SODIUM
     Dosage: UNK, ONGOING = NOT CHECKED
     Dates: start: 20210117, end: 20210315
  15. VITAMINS WITH MINERALS [Concomitant]
     Active Substance: MINERALS\VITAMINS
     Dosage: UNK, ONGOING = CHECKED
     Dates: start: 20170203
  16. PREGABALIN [Concomitant]
     Active Substance: PREGABALIN
     Dosage: UNK, ONGOING = CHECKED
     Dates: start: 20190821
  17. PANTOPRAZOLE [Concomitant]
     Active Substance: PANTOPRAZOLE
     Indication: Gastrointestinal disorder
     Dosage: UNK, ONGOING = NOT CHECKED
     Dates: start: 20210317, end: 20210607
  18. OLEOVIT-D3 [Concomitant]
     Dosage: UNK, ONGOING = CHECKED
     Dates: start: 20170329
  19. Paracodin [Concomitant]
     Indication: Cough
     Dosage: ONGOING = NOT CHECKED
     Dates: start: 20210324, end: 20210427
  20. Paracodin [Concomitant]
     Dosage: ONGOING = NOT CHECKED
     Dates: start: 20210324, end: 20210427

REACTIONS (1)
  - General physical health deterioration [Fatal]

NARRATIVE: CASE EVENT DATE: 20210303
